FAERS Safety Report 9552196 (Version 1)
Quarter: 2013Q3

REPORT INFORMATION
  Report Type: Spontaneous
  Country: US (occurrence: None)
  Receive Date: 20130923
  Receipt Date: 20130923
  Transmission Date: 20140515
  Serious: Yes (Other)
  Sender: FDA-Public Use
  Company Number: 2013P1019411

PATIENT
  Sex: Female

DRUGS (4)
  1. PLAQUENIL [Suspect]
  2. METHOTREXATE [Suspect]
     Indication: RHEUMATOID ARTHRITIS
  3. PREDNISONE [Suspect]
     Indication: RHEUMATOID ARTHRITIS
  4. REMICADE [Suspect]
     Indication: RHEUMATOID ARTHRITIS

REACTIONS (5)
  - Hand deformity [None]
  - Drug hypersensitivity [None]
  - Lung disorder [None]
  - Burning sensation [None]
  - Blood pressure decreased [None]
